FAERS Safety Report 9236646 (Version 1)
Quarter: 2013Q2

REPORT INFORMATION
  Report Type: Spontaneous
  Country: US (occurrence: None)
  Receive Date: 20130415
  Receipt Date: 20130415
  Transmission Date: 20140414
  Serious: Yes (Death)
  Sender: FDA-Public Use
  Company Number: SYM-2013-02743

PATIENT
  Age: 49 Year
  Sex: Female

DRUGS (2)
  1. XENAZINE [Suspect]
     Indication: HUNTINGTON^S DISEASE
     Dosage: 12.5 MG, 6 IN 1 D, ORAL
     Route: 048
     Dates: start: 200910, end: 20121202
  2. REFLEX (PICLOMAINE SALICYLATE) (500 MILLIGRAM, TABLETS) (PICOLAMINE SALICYLALTE) [Concomitant]

REACTIONS (1)
  - Pneumonia aspiration [None]
